FAERS Safety Report 10052943 (Version 1)
Quarter: 2014Q1

REPORT INFORMATION
  Report Type: Spontaneous
  Country: US (occurrence: None)
  Receive Date: 20140331
  Receipt Date: 20140331
  Transmission Date: 20141002
  Serious: Yes (Other)
  Sender: FDA-Public Use
  Company Number: 2014041509

PATIENT
  Age: 9 Year
  Sex: Male

DRUGS (3)
  1. STIMATE [Suspect]
     Indication: EPISTAXIS
  2. DESMOPRESSIN ACETATE [Suspect]
     Indication: EPISTAXIS
     Route: 030
  3. DESMOPRESSIN ACETATE [Suspect]
     Indication: EPISTAXIS
     Route: 045

REACTIONS (4)
  - Haemorrhage [None]
  - Epistaxis [None]
  - Platelet dysfunction [None]
  - Drug ineffective [None]
